FAERS Safety Report 5033998-1 (Version None)
Quarter: 2006Q2

REPORT INFORMATION
  Report Type: 
  Country: None (occurrence: None)
  Receive Date: 20060512
  Receipt Date: 20050429
  Transmission Date: 20061013
  Serious: Yes (Other)
  Sender: FDA-Public Use
  Company Number: OSCN-PR-0502S-0016

PATIENT
  Age: 52 Year
  Sex: Female
  Weight: 95.2554 kg

DRUGS (1)
  1. OMNISCAN [Suspect]
     Indication: ACOUSTIC NEUROMA
     Dosage: 20 ML, SINGLE DOSE, I.V.
     Route: 042
     Dates: start: 20050126, end: 20050126

REACTIONS (1)
  - HYPERSENSITIVITY [None]
